FAERS Safety Report 6297652-0 (Version None)
Quarter: 2009Q3

REPORT INFORMATION
  Report Type: 
  Country: None (occurrence: None)
  Receive Date: 20090805
  Receipt Date: 20090724
  Transmission Date: 20100115
  Serious: Yes (Death)
  Sender: FDA-Public Use
  Company Number: PE-PFIZER INC-2009247280

PATIENT
  Age: 87 Year

DRUGS (2)
  1. DIFLUCAN [Suspect]
     Dosage: UNK
     Route: 048
     Dates: start: 20081101
  2. LIPITOR [Suspect]
     Dosage: UNK
     Route: 048
     Dates: start: 20081101

REACTIONS (1)
  - DEATH [None]
